FAERS Safety Report 13773239 (Version 1)
Quarter: 2017Q3

REPORT INFORMATION
  Report Type: Spontaneous
  Country: US (occurrence: US)
  Receive Date: 20170720
  Receipt Date: 20170720
  Transmission Date: 20171127
  Serious: Yes (Death)
  Sender: FDA-Public Use
  Company Number: US-PFIZER INC-2017314691

PATIENT
  Age: 57 Year
  Sex: Male

DRUGS (1)
  1. SUTENT [Suspect]
     Active Substance: SUNITINIB MALATE
     Indication: MALIGNANT NEOPLASM PROGRESSION
     Dosage: 50 MG, CYCLIC (DAILY FOR 28 DAYS THEN 2 WEEKS OFF)
     Route: 048
     Dates: start: 201606

REACTIONS (1)
  - Death [Fatal]

NARRATIVE: CASE EVENT DATE: 20170716
